FAERS Safety Report 13671240 (Version 1)
Quarter: 2017Q2

REPORT INFORMATION
  Report Type: Spontaneous
  Country: US (occurrence: US)
  Receive Date: 20170620
  Receipt Date: 20170620
  Transmission Date: 20170830
  Serious: Yes (Other)
  Sender: FDA-Public Use
  Company Number: US-ROCHE-643726

PATIENT
  Age: 70 Year
  Sex: Female
  Weight: 78.5 kg

DRUGS (8)
  1. KYTRIL [Concomitant]
     Active Substance: GRANISETRON HYDROCHLORIDE
     Indication: NAUSEA
     Route: 048
  2. XELODA [Suspect]
     Active Substance: CAPECITABINE
     Dosage: DOSE: 5 PILLS/DAY, 2500 MG IN DIVIDED DOSES
     Route: 048
  3. XELODA [Suspect]
     Active Substance: CAPECITABINE
     Dosage: TWO WEEKS ON AND ONE WEEK OFF
     Route: 048
  4. XANAX [Concomitant]
     Active Substance: ALPRAZOLAM
     Indication: ANXIETY
     Route: 048
  5. FASLODEX [Concomitant]
     Active Substance: FULVESTRANT
     Indication: BREAST CANCER METASTATIC
     Route: 030
  6. XELODA [Suspect]
     Active Substance: CAPECITABINE
     Dosage: DOSE: 6 PILLS/DAY, 1500 MG IN AM AND 1500 MG IN PM
     Route: 048
  7. LUNESTA [Concomitant]
     Active Substance: ESZOPICLONE
     Indication: INSOMNIA
     Route: 048
  8. XELODA [Suspect]
     Active Substance: CAPECITABINE
     Indication: BREAST CANCER METASTATIC
     Dosage: DOSE: 8 PILLS/DAY: 500 X 4 IN AM, 500 MG X 4 IN PM
     Route: 048

REACTIONS (5)
  - Faeces discoloured [Unknown]
  - Diarrhoea [Recovering/Resolving]
  - Hypoaesthesia [Unknown]
  - Skin exfoliation [Unknown]
  - Full blood count decreased [Unknown]

NARRATIVE: CASE EVENT DATE: 200905
